FAERS Safety Report 4339227-6 (Version None)
Quarter: 2004Q2

REPORT INFORMATION
  Report Type: 
  Country: None (occurrence: None)
  Receive Date: 20040412
  Receipt Date: 20040401
  Transmission Date: 20050107
  Serious: Yes (Death)
  Sender: FDA-Public Use
  Company Number: 2004UW04450

PATIENT
  Age: 63 Year
  Sex: Male

DRUGS (4)
  1. IRESSA [Suspect]
     Indication: OESOPHAGEAL ULCER
     Dosage: 250 MG QD PO
     Route: 048
     Dates: start: 20030915, end: 20031217
  2. XANAX [Concomitant]
  3. PAXIL [Concomitant]
  4. NEXIUM [Concomitant]

REACTIONS (6)
  - ACUTE RESPIRATORY DISTRESS SYNDROME [None]
  - DYSPHAGIA [None]
  - LUNG INFILTRATION [None]
  - PNEUMONIA [None]
  - RESPIRATORY FAILURE [None]
  - WEIGHT DECREASED [None]
